FAERS Safety Report 20628086 (Version 1)
Quarter: 2022Q1

REPORT INFORMATION
  Report Type: Spontaneous
  Country: US (occurrence: None)
  Receive Date: 20220323
  Receipt Date: 20220323
  Transmission Date: 20220424
  Serious: Yes (Other)
  Sender: FDA-Public Use
  Company Number: None

PATIENT
  Age: 59 Year
  Sex: Female

DRUGS (1)
  1. HYDROCORTISONE [Suspect]
     Active Substance: HYDROCORTISONE
     Indication: Adrenal insufficiency
     Dosage: OTHER FREQUENCY : 3 TIMES/DAY;?
     Route: 048
     Dates: start: 2000, end: 2019

REACTIONS (4)
  - Drug ineffective [None]
  - Fatigue [None]
  - Palpitations [None]
  - Product substitution issue [None]
